FAERS Safety Report 6928485-7 (Version None)
Quarter: 2010Q3

REPORT INFORMATION
  Report Type: 
  Country: None (occurrence: None)
  Receive Date: 20100806
  Receipt Date: 20090701
  Transmission Date: 20110219
  Serious: No
  Sender: FDA-Public Use
  Company Number: 2009-00281

PATIENT
  Age: 30 Year
  Sex: Female
  Weight: 63.5036 kg

DRUGS (3)
  1. ZICAM COLD REMEDY GEL SWABS [Suspect]
     Dosage: TID X 1 DAY
     Dates: start: 20090613, end: 20090614
  2. FLONASE [Concomitant]
  3. NUVARING [Concomitant]

REACTIONS (2)
  - AGEUSIA [None]
  - ANOSMIA [None]
